FAERS Safety Report 24858813 (Version 2)
Quarter: 2025Q1

REPORT INFORMATION
  Report Type: Spontaneous
  Country: US (occurrence: US)
  Receive Date: 20250118
  Receipt Date: 20250217
  Transmission Date: 20250408
  Serious: No
  Sender: ABBVIE
  Company Number: US-ABBVIE-6082645

PATIENT
  Age: 53 Year
  Sex: Female
  Weight: 73 kg

DRUGS (3)
  1. VRAYLAR [Suspect]
     Active Substance: CARIPRAZINE
     Indication: Mental disorder
     Dosage: FORM STRENGTH: 1.5 MG, QHS ONCE A DAY AT BEDTIME
     Route: 048
     Dates: start: 20241218, end: 20250105
  2. BUSPAR [Concomitant]
     Active Substance: BUSPIRONE HYDROCHLORIDE
     Indication: Anxiety
     Route: 048
  3. TRINTELLIX [Concomitant]
     Active Substance: VORTIOXETINE HYDROBROMIDE
     Indication: Depression

REACTIONS (3)
  - Abnormal behaviour [Recovered/Resolved]
  - Dysstasia [Not Recovered/Not Resolved]
  - Feeling jittery [Recovered/Resolved]
